FAERS Safety Report 4518209-5 (Version None)
Quarter: 2004Q4

REPORT INFORMATION
  Report Type: 
  Country: None (occurrence: None)
  Receive Date: 20041130
  Receipt Date: 20041123
  Transmission Date: 20050328
  Serious: Yes (Hospitalization)
  Sender: FDA-Public Use
  Company Number: USA041082117

PATIENT
  Age: 40 Year
  Sex: Male
  Weight: 114 kg

DRUGS (4)
  1. CYMBALTA [Suspect]
     Indication: MAJOR DEPRESSION
     Dosage: 60 MG DAY
     Dates: start: 20040816, end: 20041022
  2. LUVOX [Concomitant]
  3. ZOMIG [Concomitant]
  4. FLONASE [Concomitant]

REACTIONS (15)
  - ABASIA [None]
  - CONFUSIONAL STATE [None]
  - DISCOMFORT [None]
  - GAIT DISTURBANCE [None]
  - HAEMOCHROMATOSIS [None]
  - HALLUCINATION, VISUAL [None]
  - HEPATIC TRAUMA [None]
  - JAUNDICE CHOLESTATIC [None]
  - NAUSEA [None]
  - PAIN [None]
  - PRURITUS [None]
  - SLEEP DISORDER [None]
  - URTICARIA [None]
  - VOMITING [None]
  - WEIGHT DECREASED [None]
